FAERS Safety Report 8536156-9 (Version None)
Quarter: 2012Q3

REPORT INFORMATION
  Report Type: 
  Country: None (occurrence: None)
  Receive Date: 20120725
  Receipt Date: 20120711
  Transmission Date: 20120928
  Serious: Yes (Other)
  Sender: FDA-Public Use
  Company Number: US-ELI_LILLY_AND_COMPANY-US201207003919

PATIENT
  Age: 48 Year
  Sex: Female

DRUGS (4)
  1. PLAQUENIL [Concomitant]
  2. AMBIEN [Concomitant]
  3. CYMBALTA [Suspect]
     Indication: DEPRESSION
     Dosage: 180 MG, QD
  4. PREMARIN [Concomitant]

REACTIONS (2)
  - MYOCLONIC EPILEPSY [None]
  - OVERDOSE [None]
